FAERS Safety Report 6967085-X (Version None)
Quarter: 2010Q3

REPORT INFORMATION
  Report Type: 
  Country: None (occurrence: None)
  Receive Date: 20100907
  Receipt Date: 20100823
  Transmission Date: 20110219
  Serious: Yes (Hospitalization)
  Sender: FDA-Public Use
  Company Number: US-BAYER-201024927NA

PATIENT
  Age: 33 Year
  Sex: Female
  Weight: 84 kg

DRUGS (4)
  1. YAZ [Suspect]
     Indication: PREMENSTRUAL SYNDROME
     Route: 048
     Dates: start: 20070913, end: 20090806
  2. WELLBUTRIN XL [Concomitant]
     Indication: DEPRESSION
     Dates: start: 20070101, end: 20100701
  3. LAMICTAL [Concomitant]
     Indication: AFFECTIVE DISORDER
     Dates: start: 20070101
  4. XANAX [Concomitant]
     Indication: ANXIETY
     Dates: start: 20070101

REACTIONS (5)
  - ABDOMINAL PAIN [None]
  - ABDOMINAL PAIN UPPER [None]
  - BILIARY DYSKINESIA [None]
  - CHANGE OF BOWEL HABIT [None]
  - CHOLECYSTITIS CHRONIC [None]
